FAERS Safety Report 18834954 (Version 2)
Quarter: 2022Q1

REPORT INFORMATION
  Report Type: Spontaneous
  Country: US (occurrence: US)
  Receive Date: 20210203
  Receipt Date: 20220127
  Transmission Date: 20220423
  Serious: No
  Sender: FDA-Public Use
  Company Number: US-ALLERGAN-2038487US

PATIENT
  Sex: Female

DRUGS (2)
  1. BOTOX COSMETIC [Suspect]
     Active Substance: ONABOTULINUMTOXINA
     Indication: Product used for unknown indication
     Dosage: 21 UNITS, SINGLE
     Dates: start: 20200916, end: 20200916
  2. BOTOX COSMETIC [Suspect]
     Active Substance: ONABOTULINUMTOXINA
     Dosage: 78 UNITS, SINGLE
     Dates: start: 20200824, end: 20200824

REACTIONS (2)
  - Drug ineffective [Unknown]
  - Product quality issue [Unknown]
